FAERS Safety Report 5163244-X (Version None)
Quarter: 2006Q4

REPORT INFORMATION
  Report Type: 
  Country: None (occurrence: None)
  Receive Date: 20061204
  Receipt Date: 20061121
  Transmission Date: 20070319
  Serious: Yes (Hospitalization)
  Sender: FDA-Public Use
  Company Number: PHBS2006NZ18151

PATIENT
  Age: 68 Year
  Sex: Female

DRUGS (2)
  1. CLOZARIL [Suspect]
     Dosage: 150 MG/D
     Route: 048
     Dates: start: 20061029
  2. DIAZEPAM [Concomitant]
     Dosage: 4 MG, QHS

REACTIONS (4)
  - LOWER RESPIRATORY TRACT INFECTION [None]
  - LYMPHOCYTE COUNT DECREASED [None]
  - MALAISE [None]
  - PYREXIA [None]
